FAERS Safety Report 21295096 (Version 1)
Quarter: 2022Q3

REPORT INFORMATION
  Report Type: Spontaneous
  Country: US (occurrence: US)
  Receive Date: 20220905
  Receipt Date: 20220905
  Transmission Date: 20221027
  Serious: Yes (Hospitalization, Other)
  Sender: FDA-Public Use
  Company Number: US-GLAXOSMITHKLINE-US2022GSK127905

PATIENT

DRUGS (5)
  1. BUPROPION [Suspect]
     Active Substance: BUPROPION
     Indication: Product used for unknown indication
     Dosage: 150 MG, BID
  2. METOCLOPRAMIDE [Suspect]
     Active Substance: METOCLOPRAMIDE
     Indication: Product used for unknown indication
     Dosage: 5 MG  4 TIMES DAILY AS NEEDED
  3. TRAMADOL [Suspect]
     Active Substance: TRAMADOL
     Indication: Product used for unknown indication
     Dosage: UNK
  4. CITALOPRAM [Suspect]
     Active Substance: CITALOPRAM HYDROBROMIDE
     Indication: Product used for unknown indication
     Dosage: 40 MG, QD
  5. FLUOXETINE [Suspect]
     Active Substance: FLUOXETINE HYDROCHLORIDE
     Indication: Product used for unknown indication
     Dosage: 40 MG, QD

REACTIONS (24)
  - Serotonin syndrome [Recovered/Resolved]
  - Tachycardia [Recovered/Resolved]
  - Hyperreflexia [Recovered/Resolved]
  - Clonus [Recovered/Resolved]
  - Restlessness [Recovered/Resolved]
  - Electrocardiogram QT prolonged [Recovered/Resolved]
  - Tearfulness [Recovered/Resolved]
  - Dysphoria [Recovered/Resolved]
  - Feeling abnormal [Recovered/Resolved]
  - Dizziness [Recovered/Resolved]
  - Sinusitis [Recovered/Resolved]
  - Vertigo [Recovered/Resolved]
  - Condition aggravated [Recovered/Resolved]
  - Confusional state [Recovered/Resolved]
  - Disorientation [Recovered/Resolved]
  - Visual impairment [Recovered/Resolved]
  - Metamorphopsia [Recovered/Resolved]
  - Tachyphrenia [Recovered/Resolved]
  - Thinking abnormal [Recovered/Resolved]
  - Flushing [Recovered/Resolved]
  - Hyperhidrosis [Recovered/Resolved]
  - Ketosis [Recovered/Resolved]
  - Blood glucose decreased [Recovered/Resolved]
  - Anxiety [Recovered/Resolved]
